FAERS Safety Report 5046826-5 (Version None)
Quarter: 2006Q3

REPORT INFORMATION
  Report Type: 
  Country: None (occurrence: None)
  Receive Date: 20060705
  Receipt Date: 20060705
  Transmission Date: 20061208
  Serious: Yes (Other)
  Sender: FDA-Public Use
  Company Number: None

PATIENT
  Age: 3 Year
  Sex: Female

DRUGS (3)
  1. ALBUTEROL [Suspect]
     Dosage: 2.5MG Q3-4H PRN INHAL
     Route: 055
     Dates: start: 20050818, end: 20060404
  2. FLUTICASONE PROPIONATE [Concomitant]
  3. CETIRIZINE [Concomitant]

REACTIONS (1)
  - DECREASED APPETITE [None]
